FAERS Safety Report 7305131-4 (Version None)
Quarter: 2011Q1

REPORT INFORMATION
  Report Type: 
  Country: None (occurrence: None)
  Receive Date: 20110222
  Receipt Date: 20110211
  Transmission Date: 20110831
  Serious: Yes (Hospitalization)
  Sender: FDA-Public Use
  Company Number: DE-ELI_LILLY_AND_COMPANY-DE201102003347

PATIENT
  Sex: Male

DRUGS (6)
  1. CONCOR [Concomitant]
  2. HYDROCHLOROTHIAZIDE [Concomitant]
  3. CORDAREX [Concomitant]
  4. HUMULIN R [Suspect]
     Indication: DIABETES MELLITUS
     Dosage: UNK, AS NEEDED
     Route: 058
  5. MARCUMAR [Concomitant]
  6. PANTOZOL [Concomitant]

REACTIONS (2)
  - NEOPLASM MALIGNANT [None]
  - BLOOD GLUCOSE INCREASED [None]
